FAERS Safety Report 8828005 (Version 1)
Quarter: 2012Q4

REPORT INFORMATION
  Report Type: 
  Country: US (occurrence: US)
  Receive Date: 20121005
  Receipt Date: 20121005
  Transmission Date: 20130627
  Serious: Yes (Hospitalization)
  Sender: FDA-Public Use
  Company Number: US-JNJFOC-20120911771

PATIENT
  Sex: Male
  Weight: 66.68 kg

DRUGS (11)
  1. ZYTIGA [Suspect]
     Indication: PROSTATE CANCER
     Route: 048
     Dates: start: 201208
  2. CIPROFLOXACIN [Suspect]
     Indication: URINARY TRACT INFECTION
     Route: 065
     Dates: start: 201209, end: 201209
  3. PREDNISONE [Concomitant]
     Indication: PROSTATE CANCER
     Dates: start: 201208
  4. METOPROLOL [Concomitant]
     Indication: BLOOD PRESSURE
     Dates: start: 201110
  5. GLIPIZIDE [Concomitant]
     Indication: BLOOD GLUCOSE ABNORMAL
     Dates: start: 201110
  6. DOCUSATE [Concomitant]
     Indication: CONSTIPATION
     Dates: start: 201110
  7. SENNA [Concomitant]
     Indication: CONSTIPATION
     Dates: start: 201110
  8. PROTONIX [Concomitant]
     Indication: GASTROOESOPHAGEAL REFLUX DISEASE
     Dates: start: 201110
  9. MIRALAX [Concomitant]
     Indication: CONSTIPATION
     Dates: start: 201110
  10. MORPHINE [Concomitant]
     Indication: PAIN
     Dates: start: 201110
  11. OXYCODONE [Concomitant]
     Indication: PAIN
     Dates: start: 201110

REACTIONS (12)
  - Somnolence [Recovered/Resolved]
  - Dysstasia [Recovered/Resolved]
  - Speech disorder [Recovered/Resolved]
  - Balance disorder [Recovered/Resolved]
  - Blood glucose decreased [Recovered/Resolved]
  - Urinary tract infection [Not Recovered/Not Resolved]
  - Drug ineffective [Not Recovered/Not Resolved]
  - Nausea [Not Recovered/Not Resolved]
  - Vomiting [Not Recovered/Not Resolved]
  - Pelvic pain [Recovered/Resolved]
  - Headache [Not Recovered/Not Resolved]
  - Urinary retention [Unknown]
